FAERS Safety Report 5287575-8 (Version None)
Quarter: 2007Q1

REPORT INFORMATION
  Report Type: 
  Country: None (occurrence: None)
  Receive Date: 20070126
  Receipt Date: 20051206
  Transmission Date: 20070707
  Serious: No
  Sender: FDA-Public Use
  Company Number: 2006CT001107

PATIENT
  Age: 66 Year
  Sex: Female
  Weight: 90.7 kg

DRUGS (18)
  1. VENTAVIS [Suspect]
     Indication: PULMONARY HYPERTENSION
     Dosage: SEE IMAGE
     Route: 055
     Dates: start: 20050930, end: 20051001
  2. VENTAVIS [Suspect]
     Indication: PULMONARY HYPERTENSION
     Dosage: SEE IMAGE
     Route: 055
     Dates: start: 20051001, end: 20051101
  3. PLAQUENIL [Concomitant]
  4. MS CONTIN [Concomitant]
  5. TIOTROPIUM BROMIDE [Concomitant]
  6. ALBUTEROL [Concomitant]
  7. FOLIC ACID [Concomitant]
  8. PREDNISONE TAB [Concomitant]
  9. SINGULAIR [Concomitant]
  10. METOCLOPRAMIDE [Concomitant]
  11. SEREVENT [Concomitant]
  12. NEURONTIN [Concomitant]
  13. ALPRAZOLAM [Concomitant]
  14. FOSAMAX [Concomitant]
  15. PAXIL [Concomitant]
  16. OXYGEN [Concomitant]
  17. METHOTREXATE [Concomitant]
  18. TRACLEER [Concomitant]

REACTIONS (5)
  - DIZZINESS [None]
  - EYE PAIN [None]
  - EYE PRURITUS [None]
  - STOMATITIS [None]
  - VISION BLURRED [None]
